FAERS Safety Report 8309377-8 (Version None)
Quarter: 2012Q2

REPORT INFORMATION
  Report Type: 
  Country: None (occurrence: None)
  Receive Date: 20120420
  Receipt Date: 20120412
  Transmission Date: 20120825
  Serious: Yes (Other)
  Sender: FDA-Public Use
  Company Number: 2012SP004736

PATIENT
  Age: 84 Year
  Sex: Male
  Weight: 70 kg

DRUGS (8)
  1. EXELON [Concomitant]
  2. METOPROLOL SUCCINATE [Concomitant]
  3. PANTOPRAZOLE [Concomitant]
  4. REMERON [Suspect]
     Indication: DEPRESSION
     Dosage: 1 DF;QD;PO
     Route: 048
     Dates: start: 20101209
  5. REMERON [Suspect]
     Indication: DEPRESSION
     Dosage: 1 DF;QD;PO
     Route: 048
     Dates: start: 20101101
  6. PRADAXA [Concomitant]
  7. ATORVASTATIN CALCIUM [Concomitant]
  8. LEXAPRO [Concomitant]

REACTIONS (5)
  - NERVOUSNESS [None]
  - DISEASE RECURRENCE [None]
  - CONFUSIONAL STATE [None]
  - AGITATION [None]
  - CEREBRAL ISCHAEMIA [None]
